FAERS Safety Report 7272398-0 (Version None)
Quarter: 2011Q1

REPORT INFORMATION
  Report Type: 
  Country: None (occurrence: None)
  Receive Date: 20110203
  Receipt Date: 20101216
  Transmission Date: 20110831
  Serious: Yes (Hospitalization, Other)
  Sender: FDA-Public Use
  Company Number: US-BAYER-200942496NA

PATIENT
  Sex: Female
  Weight: 72 kg

DRUGS (11)
  1. PONSTIL [Concomitant]
  2. GAS X [Concomitant]
     Dosage: UNK
  3. YAZ [Suspect]
  4. REGLAN [Concomitant]
     Dosage: UNK
     Dates: start: 20070207
  5. YAZ [Suspect]
     Indication: PREMENSTRUAL SYNDROME
     Dosage: 1 TABLET / DAY
     Route: 048
     Dates: start: 20070720, end: 20080910
  6. MIRALAX [Concomitant]
     Dosage: UNK
     Route: 048
     Dates: start: 20071001
  7. MAALOX [ALUMINIUM HYDROXIDE,MAGNESIUM HYDROXIDE] [Concomitant]
     Dosage: UNK
     Dates: start: 20071107
  8. GOLYTELY [MACROGOL,POTASSIUM CHLORIDE,SODIUM BICARBONATE,SODIUM SULFAT [Concomitant]
     Dosage: UNK
     Dates: start: 20080207
  9. DULCOLAX [Concomitant]
     Dosage: UNK
     Dates: start: 20080207
  10. PREVACID [Concomitant]
     Dosage: UNK
     Route: 048
     Dates: start: 20071107
  11. FLEET ENEMA [PARAFFIN, LIQUID] [Concomitant]
     Dosage: UNK
     Dates: start: 20080207

REACTIONS (8)
  - ABDOMINAL PAIN [None]
  - ABDOMINAL PAIN UPPER [None]
  - BILIARY DYSKINESIA [None]
  - POSTOPERATIVE ILEUS [None]
  - ABDOMINAL TENDERNESS [None]
  - NAUSEA [None]
  - CHOLECYSTITIS CHRONIC [None]
  - VOMITING [None]
